APPROVED DRUG PRODUCT: TERAZOSIN HYDROCHLORIDE
Active Ingredient: TERAZOSIN HYDROCHLORIDE
Strength: EQ 1MG BASE
Dosage Form/Route: TABLET;ORAL
Application: A074315 | Product #001
Applicant: SANDOZ INC
Approved: Dec 31, 1998 | RLD: No | RS: No | Type: DISCN